FAERS Safety Report 8429405-9 (Version None)
Quarter: 2012Q2

REPORT INFORMATION
  Report Type: 
  Country: None (occurrence: None)
  Receive Date: 20120612
  Receipt Date: 20120606
  Transmission Date: 20120825
  Serious: No
  Sender: FDA-Public Use
  Company Number: US-BAYER-2012-057438

PATIENT
  Age: 80 Year
  Sex: Male
  Weight: 68 kg

DRUGS (4)
  1. ALMOTRIPTAN [Concomitant]
  2. ALEVE (CAPLET) [Suspect]
     Indication: ARTHRITIS
     Dosage: 1, TWICE DAILY
     Route: 048
  3. LOVASTATIN [Concomitant]
  4. ASPIRIN [Concomitant]

REACTIONS (1)
  - PAIN [None]
